FAERS Safety Report 12878188 (Version 1)
Quarter: 2016Q4

REPORT INFORMATION
  Report Type: Spontaneous
  Country: AU (occurrence: AU)
  Receive Date: 20161024
  Receipt Date: 20161024
  Transmission Date: 20170207
  Serious: Yes (Hospitalization, Other)
  Sender: FDA-Public Use
  Company Number: AU-GILEAD-2016-0238577

PATIENT
  Age: 53 Year
  Sex: Male

DRUGS (6)
  1. ENOXAPARIN [Concomitant]
     Active Substance: ENOXAPARIN
  2. OXYCODONE [Concomitant]
     Active Substance: OXYCODONE
  3. CEFTRIAXONE. [Concomitant]
     Active Substance: CEFTRIAXONE
  4. RANITIDINE. [Concomitant]
     Active Substance: RANITIDINE
     Dosage: UNK
  5. HARVONI [Suspect]
     Active Substance: LEDIPASVIR\SOFOSBUVIR
     Indication: HEPATITIS C
     Dosage: UNK
     Route: 065
  6. PHYTOMENADIONE [Concomitant]
     Active Substance: PHYTONADIONE

REACTIONS (4)
  - Intestinal ischaemia [Unknown]
  - Mesenteric vein thrombosis [Unknown]
  - Systemic candida [Unknown]
  - Acute on chronic liver failure [Unknown]

NARRATIVE: CASE EVENT DATE: 20160626
